FAERS Safety Report 23598609 (Version 1)
Quarter: 2024Q1

REPORT INFORMATION
  Report Type: Spontaneous
  Country: US (occurrence: US)
  Receive Date: 20240306
  Receipt Date: 20240306
  Transmission Date: 20240410
  Serious: Yes (Other)
  Sender: FDA-Public Use
  Company Number: US-APOTEX-2008AP003324

PATIENT
  Age: 57 Year
  Sex: Female

DRUGS (8)
  1. SERTRALINE HYDROCHLORIDE [Suspect]
     Active Substance: SERTRALINE HYDROCHLORIDE
     Indication: Bipolar II disorder
     Dosage: UNK UNK,UNK,
     Route: 065
  2. FLUOXETINE [Suspect]
     Active Substance: FLUOXETINE HYDROCHLORIDE
     Indication: Depressive symptom
     Dosage: 60 MG,DAILY,
     Route: 065
  3. FLUOXETINE [Suspect]
     Active Substance: FLUOXETINE HYDROCHLORIDE
     Dosage: 20 MG,DAILY,
     Route: 065
  4. FLUOXETINE [Suspect]
     Active Substance: FLUOXETINE HYDROCHLORIDE
     Dosage: 40 MG,DAILY,
     Route: 065
  5. BUPROPION HYDROCHLORIDE [Suspect]
     Active Substance: BUPROPION HYDROCHLORIDE
     Indication: Bipolar II disorder
     Dosage: UNK
     Route: 065
  6. FLUOXETINE HYDROCHLORIDE [Suspect]
     Active Substance: FLUOXETINE HYDROCHLORIDE
     Indication: Depressive symptom
     Dosage: 60 MILLIGRAM, DAILY
     Route: 065
  7. FLUOXETINE HYDROCHLORIDE [Suspect]
     Active Substance: FLUOXETINE HYDROCHLORIDE
     Dosage: 20 MILLIGRAM, DAILY
     Route: 065
  8. FLUOXETINE HYDROCHLORIDE [Suspect]
     Active Substance: FLUOXETINE HYDROCHLORIDE
     Dosage: 40 MILLIGRAM, DAILY
     Route: 065

REACTIONS (1)
  - Hyperhidrosis [Recovered/Resolved]
